FAERS Safety Report 6905643-9 (Version None)
Quarter: 2010Q3

REPORT INFORMATION
  Report Type: 
  Country: None (occurrence: None)
  Receive Date: 20100804
  Receipt Date: 20100723
  Transmission Date: 20110219
  Serious: Yes (Hospitalization, Other)
  Sender: FDA-Public Use
  Company Number: US-PFIZER INC-2010087813

PATIENT
  Sex: Female
  Weight: 59.41 kg

DRUGS (7)
  1. ZOLOFT [Suspect]
     Indication: ANXIETY
     Dosage: 50 MG, 2X/DAY
     Route: 048
     Dates: start: 20091201, end: 20091201
  2. ZOLOFT [Suspect]
     Indication: BIPOLAR DISORDER
     Dosage: 50 MG, 2X/DAY
     Route: 048
     Dates: start: 20100113
  3. ZOLOFT [Suspect]
     Indication: BIPOLAR I DISORDER
     Dosage: 50 MG, 2X/DAY
     Route: 048
     Dates: start: 20100301, end: 20100301
  4. ZOLOFT [Suspect]
     Indication: PSYCHOTIC DISORDER
  5. ZOLOFT [Suspect]
     Indication: ANTIDEPRESSANT THERAPY
  6. ZOLOFT [Suspect]
     Indication: DEPRESSION
  7. XANAX [Suspect]
     Dosage: UNK
     Dates: end: 20100101

REACTIONS (22)
  - AMNESIA [None]
  - ANXIETY [None]
  - BIPOLAR DISORDER [None]
  - DEAFNESS [None]
  - DECREASED APPETITE [None]
  - DEHYDRATION [None]
  - DISORIENTATION [None]
  - DRUG WITHDRAWAL SYNDROME [None]
  - EYE DISORDER [None]
  - HALLUCINATION [None]
  - HYPERREFLEXIA [None]
  - HYPOMANIA [None]
  - INSOMNIA [None]
  - MENTAL DISORDER [None]
  - MUSCULOSKELETAL STIFFNESS [None]
  - MYDRIASIS [None]
  - MYOCLONUS [None]
  - OVERDOSE [None]
  - PARANOIA [None]
  - PSYCHOTIC DISORDER [None]
  - SEROTONIN SYNDROME [None]
  - TREMOR [None]
